FAERS Safety Report 9324869 (Version 1)
Quarter: 2013Q2

REPORT INFORMATION
  Report Type: Spontaneous
  Country: DE (occurrence: DE)
  Receive Date: 20130603
  Receipt Date: 20130603
  Transmission Date: 20140414
  Serious: Yes (Hospitalization, Other)
  Sender: FDA-Public Use
  Company Number: DE-TEVA-406752GER

PATIENT
  Age: 0 Year
  Sex: Female

DRUGS (1)
  1. DIAZEPAM [Suspect]
     Route: 064

REACTIONS (3)
  - Premature baby [Recovered/Resolved]
  - Convulsion [Recovered/Resolved]
  - Drug withdrawal syndrome neonatal [Recovered/Resolved]
